FAERS Safety Report 19465176 (Version 1)
Quarter: 2021Q2

REPORT INFORMATION
  Report Type: Spontaneous
  Country: US (occurrence: US)
  Receive Date: 20210624
  Receipt Date: 20210624
  Transmission Date: 20210717
  Serious: Yes (Hospitalization)
  Sender: FDA-Public Use
  Company Number: US-BRACCO-2020US03758

PATIENT

DRUGS (1)
  1. MULTIHANCE [Suspect]
     Active Substance: GADOBENATE DIMEGLUMINE
     Indication: MAGNETIC RESONANCE IMAGING
     Dosage: 19 ML, SINGLE
     Dates: start: 20200825, end: 20200825

REACTIONS (4)
  - Dyspnoea [Unknown]
  - Nausea [Unknown]
  - Nasal congestion [Unknown]
  - Throat tightness [Unknown]

NARRATIVE: CASE EVENT DATE: 20200825
